FAERS Safety Report 12681737 (Version 2)
Quarter: 2016Q3

REPORT INFORMATION
  Report Type: Spontaneous
  Country: IT (occurrence: IT)
  Receive Date: 20160824
  Receipt Date: 20160916
  Transmission Date: 20161109
  Serious: Yes (Death, Other)
  Sender: FDA-Public Use
  Company Number: IT-ABBVIE-16P-083-1708381-00

PATIENT
  Age: 70 Year
  Sex: Male
  Weight: 68 kg

DRUGS (6)
  1. NEBIVOLOL. [Concomitant]
     Active Substance: NEBIVOLOL
     Indication: PRODUCT USED FOR UNKNOWN INDICATION
     Dosage: 1 TABLET A DAY
  2. VIEKIRAX [Suspect]
     Active Substance: OMBITASVIR\PARITAPREVIR\RITONAVIR
     Indication: HEPATITIS C
     Dosage: DAILY / 2 CPS AT BREAKFAST
     Route: 048
     Dates: start: 20160623, end: 20160714
  3. LASIX [Concomitant]
     Active Substance: FUROSEMIDE
     Indication: PRODUCT USED FOR UNKNOWN INDICATION
     Route: 048
  4. LORANS [Concomitant]
     Active Substance: LORAZEPAM
     Indication: PRODUCT USED FOR UNKNOWN INDICATION
     Dosage: IN THE EVENING
  5. EXVIERA [Suspect]
     Active Substance: DASABUVIR
     Indication: HEPATITIS C
     Dosage: DAILY / 1 CPX2 / DAY
     Route: 048
     Dates: start: 20160623, end: 20160714
  6. LACIREX [Concomitant]
     Active Substance: LACIDIPINE
     Indication: PRODUCT USED FOR UNKNOWN INDICATION
     Dosage: 1 CP IN THE MORNING
     Route: 048
     Dates: start: 20140101, end: 20160719

REACTIONS (14)
  - Hyperammonaemic encephalopathy [Unknown]
  - Apraxia [Unknown]
  - Hepatic failure [Unknown]
  - Hepatocellular injury [Unknown]
  - Respiratory distress [Unknown]
  - Hyponatraemia [Recovering/Resolving]
  - Jaundice [Unknown]
  - Dyspnoea [Unknown]
  - Respiratory failure [Fatal]
  - Hypokalaemia [Recovering/Resolving]
  - Peripheral swelling [Unknown]
  - Pyrexia [Unknown]
  - Ascites [Unknown]
  - Cardiac failure [Unknown]

NARRATIVE: CASE EVENT DATE: 20160710
